FAERS Safety Report 16694212 (Version 2)
Quarter: 2019Q3

REPORT INFORMATION
  Report Type: Spontaneous
  Country: US (occurrence: US)
  Receive Date: 20190812
  Receipt Date: 20190903
  Transmission Date: 20191004
  Serious: No
  Sender: FDA-Public Use
  Company Number: US-SA-2019SA215390

PATIENT
  Age: 71 Year
  Sex: Male

DRUGS (1)
  1. LANTUS SOLOSTAR [Suspect]
     Active Substance: INSULIN GLARGINE
     Indication: TYPE 2 DIABETES MELLITUS
     Dosage: 10 UNITS AND 15 UNIT AM AND PM
     Route: 065

REACTIONS (4)
  - Inappropriate schedule of product administration [Unknown]
  - Fatigue [Unknown]
  - Blood glucose increased [Recovered/Resolved]
  - Lethargy [Unknown]
